FAERS Safety Report 8363921-3 (Version None)
Quarter: 2012Q2

REPORT INFORMATION
  Report Type: 
  Country: None (occurrence: None)
  Receive Date: 20120515
  Receipt Date: 20120515
  Transmission Date: 20120825
  Serious: Yes (Other)
  Sender: FDA-Public Use
  Company Number: None

PATIENT
  Age: 55 Year
  Sex: Female
  Weight: 77.1115 kg

DRUGS (4)
  1. PROAIR HFA [Concomitant]
  2. QUETIAPINE [Suspect]
     Indication: ANXIETY
     Dosage: 25 MG. 3X1 DAY ORAL
     Route: 048
     Dates: start: 20120405, end: 20120425
  3. QUETIAPINE [Suspect]
     Indication: BIPOLAR DISORDER
     Dosage: 25 MG. 3X1 DAY ORAL
     Route: 048
     Dates: start: 20120405, end: 20120425
  4. QUETIAPINE [Suspect]
     Indication: TACHYPHRENIA
     Dosage: 25 MG. 3X1 DAY ORAL
     Route: 048
     Dates: start: 20120405, end: 20120425

REACTIONS (7)
  - CONFUSIONAL STATE [None]
  - THINKING ABNORMAL [None]
  - CLUMSINESS [None]
  - SOMNOLENCE [None]
  - GAIT DISTURBANCE [None]
  - FALL [None]
  - FRUSTRATION [None]
